FAERS Safety Report 12110254 (Version 7)
Quarter: 2016Q4

REPORT INFORMATION
  Report Type: Report from Study
  Country: US (occurrence: US)
  Receive Date: 20160224
  Receipt Date: 20161115
  Transmission Date: 20170206
  Serious: Yes (Hospitalization)
  Sender: FDA-Public Use
  Company Number: US-ACTELION-A-US2016-131743

PATIENT
  Age: 1 Year
  Sex: Female

DRUGS (6)
  1. TRACLEER [Suspect]
     Active Substance: BOSENTAN
     Dosage: 15 MG, BID
     Route: 048
     Dates: start: 20151218
  2. LOVENOX [Concomitant]
     Active Substance: ENOXAPARIN SODIUM
  3. SILDENAFIL. [Concomitant]
     Active Substance: SILDENAFIL
  4. TRACLEER [Suspect]
     Active Substance: BOSENTAN
     Indication: PULMONARY HYPERTENSION
     Dosage: 21.25 MG, BID
     Route: 048
     Dates: start: 20161007
  5. TRACLEER [Suspect]
     Active Substance: BOSENTAN
     Dosage: 20 MG, QD
     Route: 048
  6. REMODULIN [Concomitant]
     Active Substance: TREPROSTINIL

REACTIONS (5)
  - Rhinovirus infection [Unknown]
  - Hypoplastic left heart syndrome [Unknown]
  - Cardiac operation [Unknown]
  - Metapneumovirus infection [Unknown]
  - Respiratory syncytial virus infection [Unknown]

NARRATIVE: CASE EVENT DATE: 20160203
